FAERS Safety Report 22163439 (Version 1)
Quarter: 2023Q2

REPORT INFORMATION
  Report Type: Spontaneous
  Country: GB (occurrence: GB)
  Receive Date: 20230401
  Receipt Date: 20230401
  Transmission Date: 20230722
  Serious: Yes (Other)
  Sender: FDA-Public Use
  Company Number: None

PATIENT
  Age: 65 Year
  Sex: Female
  Weight: 68 kg

DRUGS (2)
  1. TOPIRAMATE [Suspect]
     Active Substance: TOPIRAMATE
     Indication: Cluster headache
     Dates: start: 20161001, end: 20220101
  2. BECLOMETHASONE DIPROPIONATE [Concomitant]
     Active Substance: BECLOMETHASONE DIPROPIONATE
     Indication: Asthma
     Route: 055
     Dates: start: 20150402

REACTIONS (5)
  - Skin injury [Recovered/Resolved]
  - Scar [Unknown]
  - Haemorrhage subcutaneous [Unknown]
  - Sensitive skin [Unknown]
  - Skin wound [Unknown]

NARRATIVE: CASE EVENT DATE: 20190301
